FAERS Safety Report 5096350-9 (Version None)
Quarter: 2006Q3

REPORT INFORMATION
  Report Type: 
  Country: None (occurrence: None)
  Receive Date: 20060905
  Receipt Date: 20060821
  Transmission Date: 20061208
  Serious: Yes (Hospitalization)
  Sender: FDA-Public Use
  Company Number: PHEH2006US10670

PATIENT
  Age: 61 Year
  Sex: Female

DRUGS (4)
  1. GLEEVEC [Suspect]
     Indication: SARCOMA UTERUS
     Dosage: 300 MG, QD
     Route: 048
     Dates: start: 20060818, end: 20060819
  2. GLEEVEC [Suspect]
     Dosage: 200 MG, TID
     Route: 048
     Dates: start: 20060819, end: 20060820
  3. OXYCONTIN [Concomitant]
     Indication: CANCER PAIN
     Route: 048
  4. PERCOCET [Concomitant]
     Indication: CANCER PAIN
     Route: 048

REACTIONS (6)
  - CHEST PAIN [None]
  - DIZZINESS [None]
  - MUSCLE TWITCHING [None]
  - MUSCULAR WEAKNESS [None]
  - NAUSEA [None]
  - VOMITING [None]
